FAERS Safety Report 12432832 (Version 1)
Quarter: 2016Q2

REPORT INFORMATION
  Report Type: Spontaneous
  Country: FR (occurrence: FR)
  Receive Date: 20160603
  Receipt Date: 20160603
  Transmission Date: 20160815
  Serious: Yes (Other)
  Sender: FDA-Public Use
  Company Number: FR-ELI_LILLY_AND_COMPANY-FR201605007537

PATIENT
  Age: 34 Year
  Sex: Female

DRUGS (7)
  1. LEVEMIR [Concomitant]
     Active Substance: INSULIN DETEMIR
     Dosage: 40 IU, UNKNOWN
     Route: 065
  2. METFORMINE [Concomitant]
     Active Substance: METFORMIN HYDROCHLORIDE
     Dosage: UNK UNK, TID
     Route: 065
  3. TRULICITY [Suspect]
     Active Substance: DULAGLUTIDE
     Indication: PRODUCT USED FOR UNKNOWN INDICATION
     Dosage: 1.5 MG, UNKNOWN
     Route: 058
     Dates: start: 201602
  4. LEVOTHYROX [Concomitant]
     Active Substance: LEVOTHYROXINE
  5. ATORVASTATINE                      /01326101/ [Concomitant]
     Active Substance: ATORVASTATIN
  6. NOVORAPID [Concomitant]
     Active Substance: INSULIN ASPART
  7. RAMIPRIL. [Concomitant]
     Active Substance: RAMIPRIL

REACTIONS (4)
  - Dyspepsia [Unknown]
  - Nausea [Unknown]
  - Injection site haematoma [Unknown]
  - Haematochezia [Unknown]
